FAERS Safety Report 12865267 (Version 1)
Quarter: 2016Q4

REPORT INFORMATION
  Report Type: Spontaneous
  Country: US (occurrence: US)
  Receive Date: 20161018
  Receipt Date: 20161018
  Transmission Date: 20170207
  Serious: Yes (Hospitalization)
  Sender: FDA-Public Use
  Company Number: None

PATIENT
  Age: 54 Year
  Sex: Female
  Weight: 66.28 kg

DRUGS (21)
  1. NUCYNTA ER [Concomitant]
     Active Substance: TAPENTADOL HYDROCHLORIDE
  2. ALBUTEROL. [Concomitant]
     Active Substance: ALBUTEROL
  3. NORCO [Concomitant]
     Active Substance: ACETAMINOPHEN\HYDROCODONE BITARTRATE
  4. MACROBID [Concomitant]
     Active Substance: NITROFURANTOIN\NITROFURANTOIN MONOHYDRATE
  5. IBUPROFEN. [Concomitant]
     Active Substance: IBUPROFEN
  6. XANAX (ALAPRAZAM) [Concomitant]
  7. TESSALON (BENZONATE) [Concomitant]
  8. TRAZODONE (DESYREL) [Concomitant]
  9. CLINDAMYCIN GEL [Concomitant]
  10. CEFDINIR. [Concomitant]
     Active Substance: CEFDINIR
  11. PRILOSEC [Concomitant]
     Active Substance: OMEPRAZOLE MAGNESIUM
  12. BEVACIZUMAB [Suspect]
     Active Substance: BEVACIZUMAB
     Indication: LUNG NEOPLASM MALIGNANT
     Dosage: 1082 MG IN 100 ML IV Q3W
     Route: 042
     Dates: start: 20160205
  13. SALINE NASAL GEL [Concomitant]
  14. ERLOTINIB [Suspect]
     Active Substance: ERLOTINIB
     Indication: LUNG NEOPLASM MALIGNANT
     Route: 048
     Dates: start: 20160205
  15. LEXAPRO [Concomitant]
     Active Substance: ESCITALOPRAM OXALATE
  16. AZITHROMYCIN ANHYDROUS. [Concomitant]
     Active Substance: AZITHROMYCIN ANHYDROUS
  17. ACYCLOVIR (ZOVIRAX) [Concomitant]
  18. REGENECARE GEL [Concomitant]
  19. IMODIUM [Concomitant]
     Active Substance: LOPERAMIDE HYDROCHLORIDE
  20. VALCYCLOVIR (VALTREX) [Concomitant]
  21. HYCODAN (HYDROCODONE-HOMATROPINE) [Concomitant]

REACTIONS (8)
  - Dyspnoea [None]
  - Burning sensation [None]
  - Pain in extremity [None]
  - Hypoaesthesia [None]
  - Chest pain [None]
  - Drug ineffective [None]
  - Rectal haemorrhage [None]
  - Acute coronary syndrome [None]

NARRATIVE: CASE EVENT DATE: 20161017
